FAERS Safety Report 7384570-X (Version None)
Quarter: 2011Q1

REPORT INFORMATION
  Report Type: 
  Country: None (occurrence: None)
  Receive Date: 20110330
  Receipt Date: 20110325
  Transmission Date: 20110831
  Serious: Yes (Hospitalization)
  Sender: FDA-Public Use
  Company Number: GB-AMGEN-KDC438292

PATIENT
  Age: 37 Year
  Sex: Male

DRUGS (13)
  1. FENTANYL [Concomitant]
     Dosage: 25 MG, 2 TIMES/WK
  2. CITALOPRAM HYDROBROMIDE [Concomitant]
     Dosage: 20 MG, QD
     Route: 048
  3. PREGABALIN [Concomitant]
     Dosage: 25 MG, QD
     Route: 048
  4. CINACALCET HYDROCHLORIDE [Suspect]
     Indication: HYPERPARATHYROIDISM SECONDARY
     Dosage: UNK UNK, QD
     Route: 048
     Dates: start: 20091005, end: 20100909
  5. INSULIN ASPART [Concomitant]
     Dosage: UNK UNK, TID
     Route: 058
  6. ASPIRIN [Concomitant]
     Dosage: 75 MG, QD
     Route: 048
  7. ERYTHROPOIETIN HUMAN [Concomitant]
     Dosage: 2000 IU, 2 TIMES/WK
  8. BISOPROLOL [Concomitant]
     Dosage: 1.25 MG, QD
     Route: 048
  9. LAXATIVES [Concomitant]
  10. INSULIN GLARGINE [Concomitant]
     Dosage: UNK UNK, UNK
     Route: 058
  11. LANSOPRAZOLE [Concomitant]
     Dosage: 60 MG, QD
     Route: 048
  12. DOCUSATE SODIUM [Concomitant]
     Dosage: 200 MG, BID
     Route: 048
  13. IMIPRAMINE [Concomitant]
     Dosage: 10 MG, QD
     Route: 048

REACTIONS (3)
  - NODULE [None]
  - ARTHRALGIA [None]
  - INFECTED SKIN ULCER [None]
